FAERS Safety Report 7249524-2 (Version None)
Quarter: 2011Q1

REPORT INFORMATION
  Report Type: 
  Country: None (occurrence: None)
  Receive Date: 20110128
  Receipt Date: 20101123
  Transmission Date: 20110831
  Serious: Yes (Hospitalization)
  Sender: FDA-Public Use
  Company Number: US-BAYER-201037637NA

PATIENT
  Sex: Female
  Weight: 98.413 kg

DRUGS (5)
  1. ALBUTEROL [Concomitant]
     Dosage: UNK
  2. YASMIN [Suspect]
     Indication: ACNE
     Dosage: UNK
     Dates: start: 20040101, end: 20050101
  3. OCELLA [Suspect]
     Indication: ACNE
  4. VALTREX [Concomitant]
     Indication: GENITAL HERPES
  5. YAZ [Suspect]
     Indication: ACNE
     Dosage: UNK
     Dates: start: 20040101, end: 20050101

REACTIONS (6)
  - CHOLECYSTITIS CHRONIC [None]
  - BILIARY COLIC [None]
  - GALLBLADDER CHOLESTEROLOSIS [None]
  - CHOLELITHIASIS [None]
  - OVARIAN ADENOMA [None]
  - NAUSEA [None]
